FAERS Safety Report 6687152-8 (Version None)
Quarter: 2010Q2

REPORT INFORMATION
  Report Type: 
  Country: None (occurrence: None)
  Receive Date: 20100416
  Receipt Date: 20100416
  Transmission Date: 20101027
  Serious: No
  Sender: FDA-Public Use
  Company Number: None

PATIENT

DRUGS (1)
  1. ZITHROMAX [Suspect]
     Indication: BRONCHITIS

REACTIONS (2)
  - ATRIAL FIBRILLATION [None]
  - BRONCHITIS [None]
